FAERS Safety Report 9105424 (Version 2)
Quarter: 2013Q1

REPORT INFORMATION
  Report Type: Spontaneous
  Country: ES (occurrence: ES)
  Receive Date: 20130220
  Receipt Date: 20130313
  Transmission Date: 20140127
  Serious: Yes (Other)
  Sender: FDA-Public Use
  Company Number: ES-009507513-1302ESP003877

PATIENT
  Age: 61 Year
  Sex: Male

DRUGS (1)
  1. INTERFERON ALFA-2B [Suspect]
     Indication: POLYCYTHAEMIA VERA
     Dosage: 18 MILLION IU, QD
     Route: 058
     Dates: start: 200609, end: 2011

REACTIONS (1)
  - Pyoderma gangrenosum [Recovered/Resolved]
